FAERS Safety Report 5005785-1 (Version None)
Quarter: 2006Q1

REPORT INFORMATION
  Report Type: 
  Country: None (occurrence: None)
  Receive Date: 20060321
  Receipt Date: 20050210
  Transmission Date: 20060701
  Serious: Yes (Other)
  Sender: FDA-Public Use
  Company Number: 2005028755

PATIENT
  Sex: 0

DRUGS (1)
  1. XALATAN [Suspect]
     Indication: GLAUCOMA
     Dosage: OPHTHALMIC
     Route: 047

REACTIONS (1)
  - ANGINA PECTORIS [None]
